FAERS Safety Report 5738361-3 (Version None)
Quarter: 2008Q2

REPORT INFORMATION
  Report Type: 
  Country: None (occurrence: None)
  Receive Date: 20080513
  Receipt Date: 20080501
  Transmission Date: 20081010
  Serious: Yes (Other)
  Sender: FDA-Public Use
  Company Number: CHPA2008US07416

PATIENT
  Age: 40 Year
  Sex: Female

DRUGS (1)
  1. EXCEDRIN PM (NCH) (ACETAMINOPHEN (PARACETAMOL), DIPHENHYDRAMINE HYDROC [Suspect]
     Indication: INSOMNIA
     Dosage: 2 DF, QD, ORAL
     Route: 048
     Dates: start: 20080401

REACTIONS (1)
  - BLOOD PRESSURE INCREASED [None]
